FAERS Safety Report 24251777 (Version 1)
Quarter: 2024Q3

REPORT INFORMATION
  Report Type: Spontaneous
  Country: PH (occurrence: PH)
  Receive Date: 20240827
  Receipt Date: 20240827
  Transmission Date: 20241016
  Serious: Yes (Other)
  Sender: GLAXOSMITHKLINE
  Company Number: PH-GLAXOSMITHKLINE-PH2024APC102340

PATIENT

DRUGS (1)
  1. SERETIDE [Suspect]
     Active Substance: FLUTICASONE PROPIONATE\SALMETEROL XINAFOATE
     Indication: Asthma
     Dosage: 2 PUFF(S), QD

REACTIONS (3)
  - Prescription drug used without a prescription [Unknown]
  - Product use issue [Unknown]
  - Product prescribing error [Unknown]
